FAERS Safety Report 9783706 (Version 1)
Quarter: 2013Q4

REPORT INFORMATION
  Report Type: Spontaneous
  Country: FR (occurrence: None)
  Receive Date: 20131223
  Receipt Date: 20131223
  Transmission Date: 20140711
  Serious: Yes (Hospitalization)
  Sender: FDA-Public Use
  Company Number: 1944314

PATIENT
  Age: 64 Year
  Sex: Female

DRUGS (5)
  1. CARBOPLATIN [Suspect]
     Indication: BRONCHIAL CARCINOMA
     Dosage: 570 MG MILLIGRAM(S) (UNKNOWN) INTRAVENOUS (NOT OTHERWISE SPECIFIED)
     Route: 042
     Dates: start: 20120130, end: 20120130
  2. TAXOTERE [Suspect]
     Indication: BRONCHIAL CARCINOMA
     Dosage: 146 MG MILLIGRAM(S) (UNKNOWN) INTRAVENOUS (NOT OTHERWISE SPECIFIED)
     Route: 042
     Dates: start: 20120130, end: 20120130
  3. SEVIKAR [Concomitant]
  4. ZOPHREN  /00955301/ [Concomitant]
  5. EMEND  /01627301/ [Concomitant]

REACTIONS (3)
  - Paraesthesia [None]
  - Palmar-plantar erythrodysaesthesia syndrome [None]
  - Rash [None]
